FAERS Safety Report 7337253-6 (Version None)
Quarter: 2011Q1

REPORT INFORMATION
  Report Type: 
  Country: None (occurrence: None)
  Receive Date: 20110222
  Receipt Date: 20110210
  Transmission Date: 20110831
  Serious: Yes (Death)
  Sender: FDA-Public Use
  Company Number: OMPQ-NO-1012S-1085

PATIENT
  Age: 83 Year
  Sex: Male

DRUGS (12)
  1. THEOPHYLLINE (THEOLONG) [Concomitant]
  2. OMNIPAQUE 70 [Suspect]
     Indication: CORONARY ARTERIAL STENT INSERTION
     Dosage: (250 ML, SINGLE DOSE, I.A) (SINGLE DOSE, I.A.)
     Route: 014
     Dates: start: 20101119, end: 20101119
  3. OMNIPAQUE 70 [Suspect]
     Indication: CORONARY ARTERIAL STENT INSERTION
     Dosage: (250 ML, SINGLE DOSE, I.A) (SINGLE DOSE, I.A.)
     Route: 014
     Dates: start: 20101221, end: 20101221
  4. ASPIRIN [Concomitant]
  5. PRAVASTATIN SODIUM (PRAVATIN) [Concomitant]
  6. HEPARIN [Suspect]
     Indication: ANTICOAGULANT THERAPY
     Dosage: (10 ML, I.V.) (11 ML, I.V.)
     Route: 042
     Dates: start: 20101221, end: 20101221
  7. HEPARIN [Suspect]
     Indication: ANTICOAGULANT THERAPY
     Dosage: (10 ML, I.V.) (11 ML, I.V.)
     Route: 042
     Dates: start: 20101119, end: 20101119
  8. PLAVIX [Concomitant]
  9. PREDNISOLONE [Concomitant]
  10. AZOSEMIDE (DIART) [Concomitant]
  11. AMPICILLIN SODIUM, SULBACTAM SODIUM (YUCION) [Concomitant]
  12. ENALAPRIL MALEATE [Concomitant]

REACTIONS (14)
  - SHOCK [None]
  - RESTLESSNESS [None]
  - PROCEDURAL COMPLICATION [None]
  - HEPARIN-INDUCED THROMBOCYTOPENIA [None]
  - THROMBOSIS [None]
  - CHEST DISCOMFORT [None]
  - DISSEMINATED INTRAVASCULAR COAGULATION [None]
  - DYSKINESIA [None]
  - ANTIBODY TEST POSITIVE [None]
  - HYPOPERFUSION [None]
  - BLOOD PRESSURE IMMEASURABLE [None]
  - CORONARY ARTERY OCCLUSION [None]
  - BLOOD PRESSURE DIASTOLIC DECREASED [None]
  - VOMITING [None]
